FAERS Safety Report 4357068-0 (Version None)
Quarter: 2004Q2

REPORT INFORMATION
  Report Type: 
  Country: None (occurrence: None)
  Receive Date: 20040512
  Receipt Date: 20031029
  Transmission Date: 20050107
  Serious: Yes (Hospitalization)
  Sender: FDA-Public Use
  Company Number: US-ROCHE-350293

PATIENT
  Age: 41 Year
  Sex: Male
  Weight: 88 kg

DRUGS (11)
  1. PEG-INTERFERON ALFA 2A (RO 25-8310) [Suspect]
     Route: 058
     Dates: end: 20031023
  2. PEG-INTERFERON ALFA 2A (RO 25-8310) [Suspect]
     Route: 058
     Dates: start: 20030626
  3. PEG-INTERFERON ALFA 2A (RO 25-8310) [Suspect]
     Route: 058
     Dates: end: 20031017
  4. PEG-INTERFERON ALFA 2A (RO 25-8310) [Suspect]
     Route: 058
     Dates: end: 20040406
  5. BLINDED THYMOSIN ALFA 1 [Suspect]
     Route: 050
     Dates: start: 20030627, end: 20031023
  6. BLINDED THYMOSIN ALFA 1 [Suspect]
     Route: 050
     Dates: end: 20040406
  7. SYNTHROID [Concomitant]
     Route: 048
     Dates: start: 20020115
  8. QUININE SULFATE [Concomitant]
     Route: 048
     Dates: start: 20020615
  9. MULTI-VITAMINS [Concomitant]
     Dosage: START DATE ALSO REPORTED AS MARCH 2002.
     Route: 048
     Dates: start: 19720615
  10. PREDNISONE [Concomitant]
     Route: 061
     Dates: start: 20031023, end: 20031027
  11. URSO [Concomitant]
     Route: 048
     Dates: start: 20031230

REACTIONS (5)
  - ABDOMINAL PAIN [None]
  - CELLULITIS [None]
  - CHOLELITHIASIS [None]
  - EXCORIATION [None]
  - THROMBOCYTOPENIA [None]
